FAERS Safety Report 9099543 (Version 3)
Quarter: 2013Q1

REPORT INFORMATION
  Report Type: Spontaneous
  Country: US (occurrence: US)
  Receive Date: 20130214
  Receipt Date: 20130318
  Transmission Date: 20140127
  Serious: Yes (Death, Disabling, Other)
  Sender: FDA-Public Use
  Company Number: US-009507513-1302USA005992

PATIENT
  Age: 51 Year
  Sex: Male
  Weight: 84.35 kg

DRUGS (6)
  1. JANUMET [Suspect]
     Indication: TYPE 2 DIABETES MELLITUS
     Dosage: 50 MG/1000MG, QD
     Route: 048
     Dates: start: 20100904, end: 20110706
  2. JANUVIA [Suspect]
     Indication: TYPE 2 DIABETES MELLITUS
     Dosage: 100 MG, QD
     Route: 048
     Dates: start: 20110210, end: 20110803
  3. LANTUS [Concomitant]
  4. SOMA [Concomitant]
  5. NORCO [Concomitant]
  6. DIAZEPAM [Concomitant]

REACTIONS (1)
  - Pancreatic carcinoma [Fatal]
